FAERS Safety Report 21172253 (Version 1)
Quarter: 2022Q3

REPORT INFORMATION
  Report Type: Spontaneous
  Country: US (occurrence: None)
  Receive Date: 20220803
  Receipt Date: 20220803
  Transmission Date: 20221027
  Serious: Yes (Other)
  Sender: FDA-Public Use
  Company Number: None

PATIENT
  Age: 60 Year
  Sex: Female

DRUGS (17)
  1. AMBRISENTAN [Suspect]
     Active Substance: AMBRISENTAN
     Indication: Pulmonary arterial hypertension
     Dosage: FREQUENCY : DAILY;?
     Route: 048
     Dates: start: 20220426, end: 20220706
  2. TADALAFIL [Concomitant]
  3. PREDNISONE [Concomitant]
  4. CYCLOBENZAPRINE [Concomitant]
  5. TORSEMIDE [Concomitant]
  6. PRADAXA [Concomitant]
  7. OMEPRAZOLE [Concomitant]
  8. SPIRONOLACTONE [Concomitant]
  9. DILTIAZEM [Concomitant]
     Active Substance: DILTIAZEM
  10. LEVOTHYROXINE [Concomitant]
  11. PROPRANOLOL [Concomitant]
     Active Substance: PROPRANOLOL HYDROCHLORIDE
  12. LEFLUNOMIDE [Concomitant]
     Active Substance: LEFLUNOMIDE
  13. ALBUTEROL HFA [Concomitant]
  14. NORCO [Concomitant]
  15. FAMOTIDINE [Concomitant]
  16. RIZATRIPTAN [Concomitant]
  17. TYLENOL [Concomitant]

REACTIONS (2)
  - Fluid retention [None]
  - Therapy cessation [None]

NARRATIVE: CASE EVENT DATE: 20220706
